FAERS Safety Report 4471863-9 (Version None)
Quarter: 2004Q4

REPORT INFORMATION
  Report Type: 
  Country: None (occurrence: None)
  Receive Date: 20041007
  Receipt Date: 20040930
  Transmission Date: 20050328
  Serious: Yes (Other)
  Sender: FDA-Public Use
  Company Number: 2004-09-1924

PATIENT
  Age: 52 Year
  Sex: Female

DRUGS (2)
  1. MOMETASONE FUROATE [Suspect]
     Indication: RHINITIS
     Dosage: 1SPRAY AM -PM
  2. AERIUS (DESLORATADINE) [Concomitant]

REACTIONS (1)
  - ANOSMIA [None]
